FAERS Safety Report 14959325 (Version 1)
Quarter: 2018Q2

REPORT INFORMATION
  Report Type: Spontaneous
  Country: US (occurrence: US)
  Receive Date: 20180510
  Receipt Date: 20180510
  Transmission Date: 20180711
  Serious: No
  Sender: FDA-Public Use
  Company Number: None

PATIENT
  Age: 26 Year
  Sex: Female

DRUGS (4)
  1. PULMOZYME [Suspect]
     Active Substance: DORNASE ALFA
     Route: 055
     Dates: start: 20160928
  2. TOBRAMYCIN NEBU [Suspect]
     Active Substance: TOBRAMYCIN SULFATE
     Indication: CYSTIC FIBROSIS
  3. PULMOZYME SOLN [Concomitant]
     Dates: start: 20160928
  4. ORKAMBI [Suspect]
     Active Substance: IVACAFTOR\LUMACAFTOR
     Dosage: 100-125 MG TAB - TAKE 2 TABLETS BY MOUTH

REACTIONS (2)
  - Maternal exposure timing unspecified [None]
  - Maternal drugs affecting foetus [None]

NARRATIVE: CASE EVENT DATE: 20180509
